FAERS Safety Report 12048585 (Version 1)
Quarter: 2016Q1

REPORT INFORMATION
  Report Type: Report from Study
  Country: US (occurrence: US)
  Receive Date: 20160209
  Receipt Date: 20160209
  Transmission Date: 20160526
  Serious: Yes (Death, Hospitalization)
  Sender: FDA-Public Use
  Company Number: US-ROCHE-384968

PATIENT
  Age: 53 Year
  Sex: Male
  Weight: 46.7 kg

DRUGS (2)
  1. BEVACIZUMAB [Suspect]
     Active Substance: BEVACIZUMAB
     Indication: SQUAMOUS CELL CARCINOMA OF HEAD AND NECK
     Dosage: ON DAY ONE OF A TWENTY-ONE DAY CYCLE, MOST RECENT DOSE ON 13/SEP/2004 AND 27/SEP/2004
     Route: 042
  2. ERLOTINIB [Suspect]
     Active Substance: ERLOTINIB
     Indication: SQUAMOUS CELL CARCINOMA OF HEAD AND NECK
     Dosage: MOST RECENT DOSE ON 28/SEP/2004
     Route: 048

REACTIONS (4)
  - Hypercalcaemia [Recovered/Resolved]
  - Disease progression [Fatal]
  - Hypercalcaemia [Recovered/Resolved]
  - Ill-defined disorder [Fatal]

NARRATIVE: CASE EVENT DATE: 20041013
